FAERS Safety Report 6925585-2 (Version None)
Quarter: 2010Q3

REPORT INFORMATION
  Report Type: 
  Country: None (occurrence: None)
  Receive Date: 20100816
  Receipt Date: 20100812
  Transmission Date: 20110219
  Serious: Yes (Hospitalization)
  Sender: FDA-Public Use
  Company Number: FR-MERCK-1008FRA00039

PATIENT
  Age: 96 Year
  Sex: Female

DRUGS (6)
  1. NOROXIN [Suspect]
     Indication: URINARY TRACT INFECTION
     Route: 048
     Dates: start: 20100326, end: 20100405
  2. WARFARIN SODIUM [Suspect]
     Indication: ATRIAL FIBRILLATION
     Route: 048
     Dates: start: 20100223, end: 20100404
  3. ATENOLOL [Concomitant]
     Route: 048
     Dates: start: 20100201
  4. AMLODIPINE BESYLATE [Concomitant]
     Route: 048
     Dates: start: 20090101
  5. SERTRALINE HYDROCHLORIDE [Concomitant]
     Route: 048
     Dates: start: 20100201
  6. RAMIPRIL [Concomitant]
     Route: 048
     Dates: start: 20090101, end: 20100403

REACTIONS (3)
  - ANAEMIA [None]
  - HAEMATOMA [None]
  - INTERNATIONAL NORMALISED RATIO INCREASED [None]
